FAERS Safety Report 9300887 (Version 1)
Quarter: 2013Q2

REPORT INFORMATION
  Report Type: Spontaneous
  Country: GB (occurrence: GB)
  Receive Date: 20130521
  Receipt Date: 20130521
  Transmission Date: 20140414
  Serious: Yes (Hospitalization, Other)
  Sender: FDA-Public Use
  Company Number: GB-009507513-1305GBR010750

PATIENT
  Age: 56 Year
  Sex: Male

DRUGS (1)
  1. FOSAMAX [Suspect]
     Dosage: 70 MG, UNK
     Route: 048

REACTIONS (1)
  - Osteonecrosis [Recovering/Resolving]
